FAERS Safety Report 7065373-2 (Version None)
Quarter: 2010Q4

REPORT INFORMATION
  Report Type: 
  Country: None (occurrence: None)
  Receive Date: 20101027
  Receipt Date: 20101019
  Transmission Date: 20110411
  Serious: Yes (Other)
  Sender: FDA-Public Use
  Company Number: CHPA2010US16638

PATIENT
  Age: 81 Year
  Sex: Female

DRUGS (3)
  1. VOLTAREN [Suspect]
     Indication: ARTHRITIS
     Dosage: 4 G, QID
     Route: 061
     Dates: start: 20101011
  2. VOLTAREN [Interacting]
     Dosage: 2 G, QID
     Route: 061
     Dates: start: 20101013
  3. AMOXICILLIN [Interacting]
     Indication: OROPHARYNGEAL PAIN
     Dosage: UNK, UNK
     Route: 048

REACTIONS (10)
  - DIZZINESS [None]
  - DRUG INTERACTION [None]
  - FEELING HOT [None]
  - GENERALISED ERYTHEMA [None]
  - HYPERSENSITIVITY [None]
  - INCORRECT DOSE ADMINISTERED [None]
  - LIP SWELLING [None]
  - OEDEMA MOUTH [None]
  - OROPHARYNGEAL PAIN [None]
  - PRURITUS GENERALISED [None]
